FAERS Safety Report 4562695-1 (Version None)
Quarter: 2005Q1

REPORT INFORMATION
  Report Type: 
  Country: None (occurrence: None)
  Receive Date: 20050127
  Receipt Date: 20050118
  Transmission Date: 20050727
  Serious: Yes (Hospitalization, Other)
  Sender: FDA-Public Use
  Company Number: US-GLAXOSMITHKLINE-A0541040A

PATIENT
  Age: 33 Year
  Sex: Female
  Weight: 124 kg

DRUGS (6)
  1. GOODY'S EXTRA STRENGTH HEADACHE POWDER [Suspect]
     Indication: ARTHRITIS
     Dosage: 10PACK PER DAY
     Route: 048
     Dates: start: 19730101
  2. LITHIUM [Concomitant]
     Indication: BIPOLAR DISORDER
     Route: 048
  3. RISPERIDONE [Concomitant]
     Indication: SCHIZOPHRENIA
     Route: 048
  4. COGENTIN [Concomitant]
     Indication: SCHIZOPHRENIA
     Route: 048
  5. VITAMIN C [Concomitant]
     Indication: VITAMIN SUPPLEMENTATION
     Route: 048
  6. NITROGLYCERIN [Concomitant]
     Indication: CHEST PAIN

REACTIONS (10)
  - CEREBROVASCULAR ACCIDENT [None]
  - COLLAPSE OF LUNG [None]
  - COMA [None]
  - CORONARY ARTERY OCCLUSION [None]
  - DRUG INEFFECTIVE [None]
  - HAEMORRHAGE [None]
  - IDIOPATHIC THROMBOCYTOPENIC PURPURA [None]
  - INTENTIONAL MISUSE [None]
  - SCHIZOPHRENIA [None]
  - WALKING AID USER [None]
